FAERS Safety Report 19449275 (Version 1)
Quarter: 2021Q2

REPORT INFORMATION
  Report Type: Spontaneous
  Country: AR (occurrence: AR)
  Receive Date: 20210622
  Receipt Date: 20210622
  Transmission Date: 20210717
  Serious: Yes (Hospitalization)
  Sender: FDA-Public Use
  Company Number: NVSC2021AR136531

PATIENT
  Sex: Male

DRUGS (1)
  1. AZOPT [Suspect]
     Active Substance: BRINZOLAMIDE
     Indication: GLAUCOMA
     Dosage: 2 DRP, QD (SINCE 7 YEARS AGO)
     Route: 065

REACTIONS (3)
  - Inappropriate schedule of product administration [Unknown]
  - Cataract [Recovering/Resolving]
  - Visual impairment [Recovering/Resolving]
